FAERS Safety Report 9734148 (Version 2)
Quarter: 2014Q3

REPORT INFORMATION
  Report Type: Spontaneous
  Country: US (occurrence: US)
  Receive Date: 20131205
  Receipt Date: 20140910
  Transmission Date: 20150326
  Serious: Yes (Hospitalization, Disabling, Other)
  Sender: FDA-Public Use
  Company Number: US-009507513-1312USA001834

PATIENT
  Sex: Female

DRUGS (4)
  1. ALENDRONATE SODIUM. [Suspect]
     Active Substance: ALENDRONATE SODIUM
     Indication: OSTEOPOROSIS
  2. ALENDRONATE SODIUM. [Suspect]
     Active Substance: ALENDRONATE SODIUM
     Indication: OSTEOPOROSIS PROPHYLAXIS
     Dosage: UNK
     Route: 048
     Dates: start: 200802, end: 2012
  3. FOSAMAX [Suspect]
     Active Substance: ALENDRONATE SODIUM
     Indication: OSTEOPOROSIS PROPHYLAXIS
     Dosage: UNK
     Route: 048
     Dates: start: 200404, end: 20120901
  4. FOSAMAX [Suspect]
     Active Substance: ALENDRONATE SODIUM
     Indication: OSTEOPOROSIS

REACTIONS (17)
  - Hip fracture [Not Recovered/Not Resolved]
  - Blood calcium decreased [Unknown]
  - Hyperlipidaemia [Unknown]
  - Essential hypertension [Unknown]
  - Peptic ulcer [Unknown]
  - Umbilical hernia repair [Unknown]
  - Osteoporosis [Not Recovered/Not Resolved]
  - Impaired fasting glucose [Unknown]
  - Low turnover osteopathy [Not Recovered/Not Resolved]
  - Appendicectomy [Unknown]
  - Anaemia postoperative [Recovering/Resolving]
  - Cholecystectomy [Unknown]
  - Femur fracture [Not Recovered/Not Resolved]
  - Sciatica [Unknown]
  - Hysterectomy [Unknown]
  - Intramedullary rod insertion [Unknown]
  - Urinary retention postoperative [Recovered/Resolved]

NARRATIVE: CASE EVENT DATE: 20120808
